FAERS Safety Report 13557060 (Version 1)
Quarter: 2017Q2

REPORT INFORMATION
  Report Type: Spontaneous
  Country: TW (occurrence: TW)
  Receive Date: 20170518
  Receipt Date: 20170518
  Transmission Date: 20170830
  Serious: Yes (Death, Life-Threatening, Other)
  Sender: FDA-Public Use
  Company Number: TW-GLENMARK PHARMACEUTICALS-2017GMK027500

PATIENT
  Age: 63 Year
  Sex: Male

DRUGS (5)
  1. FLUCONAZOLE. [Suspect]
     Active Substance: FLUCONAZOLE
     Indication: CANDIDA INFECTION
     Dosage: UNK
     Route: 065
  2. CYTARABINE. [Suspect]
     Active Substance: CYTARABINE
     Indication: NON-HODGKIN^S LYMPHOMA REFRACTORY
     Dosage: SALVAGE CHEMOTHERAPY
     Route: 065
  3. CISPLATIN. [Suspect]
     Active Substance: CISPLATIN
     Indication: NON-HODGKIN^S LYMPHOMA REFRACTORY
     Dosage: SALVAGE CHEMOTHERAPY
     Route: 065
  4. ETOPOSIDE. [Suspect]
     Active Substance: ETOPOSIDE
     Indication: NON-HODGKIN^S LYMPHOMA REFRACTORY
     Dosage: SALVAGE CHEMOTHERAPY
     Route: 065
  5. METHYLPREDNISOLONE. [Suspect]
     Active Substance: METHYLPREDNISOLONE
     Indication: NON-HODGKIN^S LYMPHOMA REFRACTORY
     Dosage: SALVAGE CHEMOTHERAPY
     Route: 065

REACTIONS (7)
  - Anaemia [Not Recovered/Not Resolved]
  - Strongyloidiasis [Fatal]
  - Respiratory failure [Unknown]
  - Upper gastrointestinal haemorrhage [Fatal]
  - Pneumonia [Unknown]
  - Altered state of consciousness [Recovered/Resolved]
  - Neutropenia [Unknown]
